FAERS Safety Report 16737120 (Version 1)
Quarter: 2019Q3

REPORT INFORMATION
  Report Type: Spontaneous
  Country: IT (occurrence: IT)
  Receive Date: 20190823
  Receipt Date: 20190823
  Transmission Date: 20191005
  Serious: Yes (Other)
  Sender: FDA-Public Use
  Company Number: IT-TEVA-2019-IT-1095379

PATIENT
  Age: 57 Year
  Sex: Female
  Weight: 80 kg

DRUGS (2)
  1. PACLITAXEL. [Suspect]
     Active Substance: PACLITAXEL
     Indication: BREAST CANCER
     Route: 042
     Dates: start: 20190718
  2. ZESTRIL 10 MG COMPRESSE [Concomitant]
     Indication: HYPERTENSION
     Route: 048

REACTIONS (3)
  - Mucosal inflammation [Recovering/Resolving]
  - Stomatitis [Recovering/Resolving]
  - Dysgeusia [Recovering/Resolving]

NARRATIVE: CASE EVENT DATE: 20190720
